FAERS Safety Report 7179917-3 (Version None)
Quarter: 2010Q4

REPORT INFORMATION
  Report Type: 
  Country: None (occurrence: None)
  Receive Date: 20101221
  Receipt Date: 20091203
  Transmission Date: 20110411
  Serious: No
  Sender: FDA-Public Use
  Company Number: US-PFIZER INC-2009310910

PATIENT
  Sex: Female
  Weight: 79.4 kg

DRUGS (1)
  1. DIDREX [Suspect]
     Indication: WEIGHT DECREASED
     Dosage: 50 MG, 3X/DAY
     Dates: start: 20091120

REACTIONS (1)
  - DRUG SCREEN POSITIVE [None]
